FAERS Safety Report 5480581-X (Version None)
Quarter: 2007Q4

REPORT INFORMATION
  Report Type: 
  Country: None (occurrence: None)
  Receive Date: 20071009
  Receipt Date: 20071001
  Transmission Date: 20080405
  Serious: Yes (Hospitalization)
  Sender: FDA-Public Use
  Company Number: B0490144A

PATIENT
  Age: 76 Year
  Sex: Male

DRUGS (9)
  1. AUGMENTIN '125' [Suspect]
     Indication: OSTEITIS
     Dosage: 1G THREE TIMES PER DAY
     Route: 048
     Dates: start: 20060123, end: 20060223
  2. CIFLOX [Suspect]
     Indication: OSTEITIS
     Dosage: 500MG TWICE PER DAY
     Route: 048
     Dates: start: 20060123, end: 20060303
  3. PRAXILENE [Suspect]
     Dosage: 200MG THREE TIMES PER DAY
     Route: 048
     Dates: end: 20060303
  4. INEXIUM [Suspect]
     Dosage: 20MG PER DAY
     Route: 048
     Dates: end: 20060303
  5. IDARAC [Suspect]
     Route: 048
     Dates: end: 20060303
  6. NEURONTIN [Concomitant]
     Dosage: 300MG TWICE PER DAY
     Route: 048
  7. GLUCOPHAGE [Concomitant]
     Dosage: 1000MG UNKNOWN
     Route: 048
  8. PLAVIX [Concomitant]
     Dosage: 75MG UNKNOWN
     Route: 048
  9. ANDROCUR [Concomitant]
     Dosage: 50MG UNKNOWN
     Route: 048

REACTIONS (7)
  - BLOOD ALKALINE PHOSPHATASE INCREASED [None]
  - BLOOD BILIRUBIN INCREASED [None]
  - GAMMA-GLUTAMYLTRANSFERASE INCREASED [None]
  - HEPATITIS [None]
  - HEPATITIS CHOLESTATIC [None]
  - HEPATOCELLULAR DAMAGE [None]
  - TRANSAMINASES INCREASED [None]
